FAERS Safety Report 5601889-0 (Version None)
Quarter: 2008Q1

REPORT INFORMATION
  Report Type: 
  Country: None (occurrence: None)
  Receive Date: 20080124
  Receipt Date: 20080111
  Transmission Date: 20080703
  Serious: Yes (Other)
  Sender: FDA-Public Use
  Company Number: US-PFIZER INC-2007096016

PATIENT
  Sex: Male

DRUGS (9)
  1. LYRICA [Suspect]
     Indication: BACK DISORDER
     Dates: start: 20070107, end: 20070101
  2. LYRICA [Suspect]
     Indication: PAIN IN EXTREMITY
  3. IBUPROFEN [Suspect]
     Indication: ARTHRITIS
  4. IBUPROFEN [Suspect]
     Indication: SCOLIOSIS
  5. ATENOLOL [Concomitant]
  6. ASPIRIN [Concomitant]
  7. LISINOPRIL [Concomitant]
  8. UROXATRAL [Concomitant]
  9. ZOCOR [Concomitant]

REACTIONS (16)
  - APPENDICECTOMY [None]
  - BLOOD CHOLESTEROL INCREASED [None]
  - CHEST PAIN [None]
  - CHOLECYSTECTOMY [None]
  - COLECTOMY [None]
  - CORONARY ARTERY BYPASS [None]
  - CORONARY ARTERY OCCLUSION [None]
  - DIVERTICULITIS [None]
  - DRUG INEFFECTIVE [None]
  - EJACULATION FAILURE [None]
  - EPIDURAL ANAESTHESIA [None]
  - INTESTINAL FUNCTIONAL DISORDER [None]
  - OEDEMA [None]
  - PAIN IN EXTREMITY [None]
  - WEIGHT DECREASED [None]
  - WEIGHT INCREASED [None]
